FAERS Safety Report 10700842 (Version 1)
Quarter: 2015Q1

REPORT INFORMATION
  Report Type: Spontaneous
  Country: US (occurrence: None)
  Receive Date: 20150108
  Receipt Date: 20150108
  Transmission Date: 20150721
  Serious: No
  Sender: FDA-Public Use
  Company Number: None

PATIENT
  Age: 71 Year
  Sex: Male
  Weight: 77.11 kg

DRUGS (1)
  1. LISINOPRIL. [Suspect]
     Active Substance: LISINOPRIL
     Indication: BLOOD PRESSURE
     Route: 048
     Dates: start: 201208

REACTIONS (8)
  - Myalgia [None]
  - Unevaluable event [None]
  - Chills [None]
  - Erectile dysfunction [None]
  - Asthenia [None]
  - Dyspepsia [None]
  - Sleep disorder [None]
  - Libido decreased [None]

NARRATIVE: CASE EVENT DATE: 2014
